FAERS Safety Report 9318920 (Version 1)
Quarter: 2013Q2

REPORT INFORMATION
  Report Type: Spontaneous
  Country: PK (occurrence: None)
  Receive Date: 20130524
  Receipt Date: 20130524
  Transmission Date: 20140414
  Serious: Yes (Death)
  Sender: FDA-Public Use
  Company Number: 2013P1006358

PATIENT
  Sex: Male

DRUGS (1)
  1. LANOXIN [Suspect]
     Route: 048

REACTIONS (2)
  - Completed suicide [None]
  - Incorrect dose administered [None]
